FAERS Safety Report 6851053-2 (Version None)
Quarter: 2010Q3

REPORT INFORMATION
  Report Type: 
  Country: None (occurrence: None)
  Receive Date: 20100716
  Receipt Date: 20071025
  Transmission Date: 20110219
  Serious: No
  Sender: FDA-Public Use
  Company Number: US-PFIZER INC-2007091478

PATIENT
  Sex: Male

DRUGS (3)
  1. CHANTIX [Suspect]
     Indication: SMOKING CESSATION THERAPY
  2. LORTAB [Concomitant]
  3. XANAX [Concomitant]

REACTIONS (2)
  - MEMORY IMPAIRMENT [None]
  - SOMNOLENCE [None]
